FAERS Safety Report 7933466-0 (Version None)
Quarter: 2011Q4

REPORT INFORMATION
  Report Type: 
  Country: None (occurrence: None)
  Receive Date: 20111118
  Receipt Date: 20111111
  Transmission Date: 20120403
  Serious: Yes (Life-Threatening, Hospitalization, Disabling)
  Sender: FDA-Public Use
  Company Number: 2011SP026128

PATIENT
  Age: 56 Year
  Sex: Female

DRUGS (3)
  1. TEMODAR [Suspect]
     Indication: GLIOBLASTOMA MULTIFORME
     Dosage: 300 MG;QD;PO
     Route: 048
     Dates: start: 20110201, end: 20110531
  2. KEPPRA [Concomitant]
  3. DECADRON [Concomitant]

REACTIONS (4)
  - EYE SWELLING [None]
  - SWELLING FACE [None]
  - URTICARIA [None]
  - RASH GENERALISED [None]
